FAERS Safety Report 8451532 (Version 2)
Quarter: 2013Q2

REPORT INFORMATION
  Report Type: Spontaneous
  Country: US (occurrence: US)
  Receive Date: 20120309
  Receipt Date: 20130606
  Transmission Date: 20140414
  Serious: No
  Sender: FDA-Public Use
  Company Number: US-AMGEN-USASP2012006003

PATIENT
  Age: 92 Year
  Sex: Female

DRUGS (6)
  1. PROLIA [Suspect]
     Indication: OSTEOPOROSIS POSTMENOPAUSAL
     Dosage: UNK
     Route: 058
     Dates: start: 20120112
  2. DIOVAN [Concomitant]
  3. SPIRONOLACTONE [Concomitant]
  4. ZOCOR [Concomitant]
  5. VITAMINS                           /00067501/ [Concomitant]
  6. PROTON PUMP INHIBITORS [Concomitant]

REACTIONS (7)
  - Gait disturbance [Not Recovered/Not Resolved]
  - Muscular weakness [Not Recovered/Not Resolved]
  - Joint swelling [Not Recovered/Not Resolved]
  - Toothache [Not Recovered/Not Resolved]
  - Back disorder [Unknown]
  - Arthralgia [Not Recovered/Not Resolved]
  - Back pain [Not Recovered/Not Resolved]
